FAERS Safety Report 7538077-7 (Version None)
Quarter: 2011Q2

REPORT INFORMATION
  Report Type: 
  Country: None (occurrence: None)
  Receive Date: 20110609
  Receipt Date: 20010223
  Transmission Date: 20111010
  Serious: Yes (Death, Hospitalization)
  Sender: FDA-Public Use
  Company Number: PHFR2001GB00862

PATIENT
  Sex: Female

DRUGS (5)
  1. NEORAL [Suspect]
     Indication: RENAL TRANSPLANT
     Dosage: 250 MG, DAILY
     Route: 048
     Dates: start: 19961030
  2. ATENOLOL [Concomitant]
     Indication: HYPERTENSION
     Route: 065
  3. PREDNISOLONE [Concomitant]
     Indication: IMMUNOSUPPRESSION
     Dosage: 7.5 MG, DAILY
     Route: 048
  4. RANITIDINE [Concomitant]
     Indication: DYSPEPSIA
     Route: 065
  5. NIFEDIPINE [Concomitant]
     Indication: HYPERTENSION
     Route: 065

REACTIONS (3)
  - CARDIOPULMONARY FAILURE [None]
  - CHEST PAIN [None]
  - MYOCARDIAL INFARCTION [None]
